FAERS Safety Report 18074358 (Version 2)
Quarter: 2020Q3

REPORT INFORMATION
  Report Type: Spontaneous
  Country: US (occurrence: US)
  Receive Date: 20200727
  Receipt Date: 20200729
  Transmission Date: 20201103
  Serious: Yes (Other)
  Sender: FDA-Public Use
  Company Number: US-ABBVIE-20K-163-3495691-00

PATIENT
  Sex: Female

DRUGS (1)
  1. ORILISSA [Suspect]
     Active Substance: ELAGOLIX SODIUM
     Indication: ENDOMETRIOSIS
     Route: 048

REACTIONS (8)
  - Adverse drug reaction [Recovering/Resolving]
  - Feeling abnormal [Unknown]
  - Surgery [Unknown]
  - Educational problem [Recovering/Resolving]
  - Impaired work ability [Recovering/Resolving]
  - Apathy [Recovering/Resolving]
  - Pain [Unknown]
  - Endometriosis [Unknown]
